FAERS Safety Report 11379834 (Version 1)
Quarter: 2015Q3

REPORT INFORMATION
  Report Type: Spontaneous
  Country: SE (occurrence: SE)
  Receive Date: 20150814
  Receipt Date: 20150814
  Transmission Date: 20151125
  Serious: Yes (Other)
  Sender: FDA-Public Use
  Company Number: SE-ROCHE-1620195

PATIENT
  Age: 37 Year
  Sex: Female

DRUGS (5)
  1. LEVOFLOXACIN HEMIHYDRATE [Concomitant]
     Active Substance: LEVOFLOXACIN
  2. ORUDIS [Concomitant]
     Active Substance: KETOPROFEN
     Route: 065
     Dates: start: 20140115, end: 20150607
  3. MINI-PILL [Concomitant]
     Active Substance: NORETHINDRONE
  4. XOLAIR [Suspect]
     Active Substance: OMALIZUMAB
     Indication: COLD URTICARIA
     Route: 058
     Dates: start: 20141208
  5. OMEPRAZOLE. [Concomitant]
     Active Substance: OMEPRAZOLE

REACTIONS (5)
  - Product use issue [Unknown]
  - Benign breast neoplasm [Recovering/Resolving]
  - Breast disorder [Not Recovered/Not Resolved]
  - Menstrual disorder [Recovered/Resolved]
  - Lung disorder [Unknown]

NARRATIVE: CASE EVENT DATE: 201504
